FAERS Safety Report 7717805-1 (Version None)
Quarter: 2011Q3

REPORT INFORMATION
  Report Type: 
  Country: None (occurrence: None)
  Receive Date: 20110830
  Receipt Date: 20110819
  Transmission Date: 20111222
  Serious: Yes (Hospitalization)
  Sender: FDA-Public Use
  Company Number: US-US-EMD SERONO, INC.-7078093

PATIENT
  Sex: Female

DRUGS (1)
  1. REBIF [Suspect]
     Indication: MULTIPLE SCLEROSIS
     Route: 058
     Dates: start: 20070119

REACTIONS (6)
  - FALL [None]
  - PAIN [None]
  - WRIST FRACTURE [None]
  - HYPOAESTHESIA [None]
  - BALANCE DISORDER [None]
  - ANXIETY [None]
